FAERS Safety Report 8441136-8 (Version None)
Quarter: 2012Q2

REPORT INFORMATION
  Report Type: 
  Country: None (occurrence: None)
  Receive Date: 20120615
  Receipt Date: 20120614
  Transmission Date: 20120825
  Serious: Yes (Death, Life-Threatening, Other)
  Sender: FDA-Public Use
  Company Number: FR-ELI_LILLY_AND_COMPANY-FR201206004454

PATIENT
  Sex: Male

DRUGS (10)
  1. ATORVASTATIN [Concomitant]
     Dosage: 40 MG, QD
     Dates: end: 20120422
  2. LEUCOVORIN CALCIUM [Concomitant]
     Dosage: 800 UG, QD
  3. CARBOPLATIN [Concomitant]
     Dosage: 200 MG/M2, UNK
     Dates: end: 20120416
  4. ACETAMINOPHEN [Concomitant]
     Dosage: UNK
     Dates: end: 20120422
  5. NEULASTA [Concomitant]
     Indication: PROPHYLAXIS
     Dosage: UNK
     Dates: start: 20120227, end: 20120422
  6. ALIMTA [Suspect]
     Dosage: 630 MG, UNK
     Route: 042
     Dates: start: 20120417, end: 20120417
  7. TAXOL [Concomitant]
     Dosage: 200 MG/M2, UNK
     Route: 042
     Dates: end: 20120416
  8. ALDACTONE [Concomitant]
     Dosage: 150 MG, QD
     Dates: end: 20120422
  9. ASPIRIN [Concomitant]
     Dosage: 150 MG, QD
     Dates: end: 20120422
  10. LASIX [Concomitant]
     Dosage: 20 MG, QD
     Dates: end: 20120422

REACTIONS (4)
  - CARDIO-RESPIRATORY ARREST [None]
  - ANAEMIA [None]
  - NEUTROPENIA [None]
  - SEPTIC SHOCK [None]
